FAERS Safety Report 17020440 (Version 1)
Quarter: 2019Q4

REPORT INFORMATION
  Report Type: Spontaneous
  Country: CA (occurrence: CA)
  Receive Date: 20191112
  Receipt Date: 20191112
  Transmission Date: 20200122
  Serious: Yes (Other)
  Sender: FDA-Public Use
  Company Number: CA-PFIZER INC-2019460382

PATIENT
  Age: 77 Year
  Sex: Female

DRUGS (3)
  1. METHOTREXATE SODIUM. [Suspect]
     Active Substance: METHOTREXATE SODIUM
     Dosage: 15 MG, WEEKLY
     Dates: start: 20190131, end: 20190408
  2. HYDROXYCHLOROQUINE [Concomitant]
     Active Substance: HYDROXYCHLOROQUINE
     Dosage: UNK (REPORTED AS 200), 1X/DAY
     Dates: start: 20181111, end: 20191006
  3. PREDNISONE. [Concomitant]
     Active Substance: PREDNISONE
     Dosage: UNK UNK, 1X/DAY
     Dates: start: 2019

REACTIONS (3)
  - Chronic kidney disease [Unknown]
  - Drug intolerance [Unknown]
  - Drug ineffective [Unknown]
